FAERS Safety Report 16801412 (Version 1)
Quarter: 2019Q3

REPORT INFORMATION
  Report Type: Spontaneous
  Country: GR (occurrence: GR)
  Receive Date: 20190912
  Receipt Date: 20190912
  Transmission Date: 20191005
  Serious: Yes (Hospitalization, Other)
  Sender: FDA-Public Use
  Company Number: GR-AMGEN-GRCSP2019147394

PATIENT
  Age: 66 Year
  Sex: Female

DRUGS (3)
  1. FILGRASTIM [Suspect]
     Active Substance: FILGRASTIM
     Indication: PANCYTOPENIA
     Dosage: UNK UNK, QD
     Route: 065
  2. OXALIPLATIN. [Concomitant]
     Active Substance: OXALIPLATIN
     Indication: COLORECTAL CANCER
     Dosage: 130 MILLIGRAM/SQ. METER, Q3WK  (D1)
  3. CAPECITABINE. [Concomitant]
     Active Substance: CAPECITABINE
     Indication: COLORECTAL CANCER
     Dosage: 1000 MILLIGRAM/SQ. METER, BID FROM D1 TO D14, 21-DAY CYCLE

REACTIONS (9)
  - Condition aggravated [Unknown]
  - Therapy non-responder [Unknown]
  - Pneumonia [Unknown]
  - Cardiogenic shock [Unknown]
  - Septic shock [Unknown]
  - Respiratory failure [Unknown]
  - Mucosal inflammation [Unknown]
  - Steatohepatitis [Unknown]
  - Enterocolitis haemorrhagic [Unknown]
